FAERS Safety Report 6083588-7 (Version None)
Quarter: 2009Q1

REPORT INFORMATION
  Report Type: 
  Country: None (occurrence: None)
  Receive Date: 20090219
  Receipt Date: 20090216
  Transmission Date: 20090719
  Serious: Yes (Death, Other)
  Sender: FDA-Public Use
  Company Number: PHHY2009CA01223

PATIENT
  Sex: Male

DRUGS (6)
  1. EXJADE [Suspect]
     Indication: HAEMOSIDEROSIS
     Dosage: 1250 MG/DAY
     Route: 048
     Dates: start: 20070814, end: 20090115
  2. DIGOXIN [Concomitant]
  3. LEVOTHYROXINE SODIUM [Concomitant]
  4. ATORVASTATIN [Concomitant]
  5. DOMPERIDONE [Concomitant]
  6. IPRATROPIUM BROMIDE [Concomitant]

REACTIONS (5)
  - BONE MARROW DISORDER [None]
  - BRONCHITIS CHRONIC [None]
  - CARDIOPULMONARY FAILURE [None]
  - PSORIASIS [None]
  - WEIGHT DECREASED [None]
